FAERS Safety Report 22160492 (Version 1)
Quarter: 2023Q1

REPORT INFORMATION
  Report Type: Spontaneous
  Country: US (occurrence: None)
  Receive Date: 20230330
  Receipt Date: 20230330
  Transmission Date: 20230417
  Serious: Yes (Hospitalization)
  Sender: FDA-Public Use
  Company Number: None

PATIENT
  Age: 39 Year
  Sex: Male

DRUGS (1)
  1. CAPECITABINE [Suspect]
     Active Substance: CAPECITABINE
     Dosage: FREQUENCY : TWICE A DAY;?
     Route: 048
     Dates: start: 20230127

REACTIONS (8)
  - Diarrhoea [None]
  - Vomiting [None]
  - Abdominal pain [None]
  - Heart rate increased [None]
  - Pyrexia [None]
  - Dehydration [None]
  - Ileus [None]
  - Therapy interrupted [None]

NARRATIVE: CASE EVENT DATE: 20230203
